FAERS Safety Report 5205772-4 (Version None)
Quarter: 2007Q1

REPORT INFORMATION
  Report Type: 
  Country: None (occurrence: None)
  Receive Date: 20070108
  Receipt Date: 20070108
  Transmission Date: 20070707
  Serious: Yes (Other)
  Sender: FDA-Public Use
  Company Number: None

PATIENT
  Age: 53 Year
  Sex: Male
  Weight: 129.7287 kg

DRUGS (1)
  1. DULOXETINE [Suspect]
     Indication: NEUROPATHY
     Dosage: 60 MG DAILY PO
     Route: 048
     Dates: start: 20061113, end: 20061226

REACTIONS (1)
  - BLOOD GLUCOSE INCREASED [None]
